FAERS Safety Report 9996796 (Version 1)
Quarter: 2014Q1

REPORT INFORMATION
  Report Type: Spontaneous
  Country: US (occurrence: US)
  Receive Date: 20140311
  Receipt Date: 20140311
  Transmission Date: 20141002
  Serious: No
  Sender: FDA-Public Use
  Company Number: US-GLAXOSMITHKLINE-A1008790A

PATIENT
  Age: 50 Year
  Sex: Male

DRUGS (1)
  1. NICORETTE OTC 2MG [Suspect]
     Indication: EX-TOBACCO USER
     Dates: start: 20130113, end: 20130114

REACTIONS (5)
  - Gingival bleeding [Unknown]
  - Gingival pain [Unknown]
  - Gingival pain [Unknown]
  - Scar [Unknown]
  - Stomatitis [Unknown]
